FAERS Safety Report 17111988 (Version 1)
Quarter: 2019Q4

REPORT INFORMATION
  Report Type: Spontaneous
  Country: US (occurrence: US)
  Receive Date: 20191203
  Receipt Date: 20191203
  Transmission Date: 20200122
  Serious: Yes (Hospitalization)
  Sender: FDA-Public Use
  Company Number: None

PATIENT
  Sex: Female

DRUGS (6)
  1. AMLODIPINE [Concomitant]
     Active Substance: AMLODIPINE BESYLATE
  2. CALCIFEROL [Concomitant]
  3. LOSARTAN. [Concomitant]
     Active Substance: LOSARTAN
  4. VITAMIN C [Concomitant]
     Active Substance: ASCORBIC ACID
  5. HUMIRA [Suspect]
     Active Substance: ADALIMUMAB
     Indication: CROHN^S DISEASE
     Dosage: ?          OTHER FREQUENCY:QWK;?
     Route: 058
  6. DELZICOL [Concomitant]
     Active Substance: MESALAMINE

REACTIONS (3)
  - Diarrhoea [None]
  - Haematochezia [None]
  - Intestinal stenosis [None]
